FAERS Safety Report 12782254 (Version 1)
Quarter: 2016Q3

REPORT INFORMATION
  Report Type: Spontaneous
  Country: US (occurrence: US)
  Receive Date: 20160927
  Receipt Date: 20160927
  Transmission Date: 20161109
  Serious: Yes (Hospitalization, Other)
  Sender: FDA-Public Use
  Company Number: US-BEH-200814480

PATIENT
  Age: 13 Year
  Sex: Male

DRUGS (1)
  1. VIVAGLOBIN [Suspect]
     Active Substance: HUMAN IMMUNOGLOBULIN G
     Route: 058

REACTIONS (3)
  - Device related infection [Unknown]
  - Catheter site swelling [Unknown]
  - Pyrexia [Unknown]

NARRATIVE: CASE EVENT DATE: 20081215
